FAERS Safety Report 4554178-X (Version None)
Quarter: 2005Q1

REPORT INFORMATION
  Report Type: 
  Country: None (occurrence: None)
  Receive Date: 20050118
  Receipt Date: 20040831
  Transmission Date: 20050727
  Serious: Yes (Hospitalization)
  Sender: FDA-Public Use
  Company Number: PHNU2004DE03073

PATIENT
  Age: 64 Year
  Sex: Female

DRUGS (5)
  1. DIURETICS [Concomitant]
     Dates: end: 20040901
  2. PROVAS COMP [Suspect]
     Indication: HYPERTENSION
     Dosage: UNK, UNK
     Route: 048
     Dates: start: 20040501, end: 20040901
  3. NORVASC [Suspect]
     Dosage: UNK, UNK
     Dates: end: 20040901
  4. CONCOR [Suspect]
     Dates: end: 20040901
  5. TOREM COR [Concomitant]

REACTIONS (4)
  - CHOLELITHIASIS [None]
  - DERMATITIS EXFOLIATIVE GENERALISED [None]
  - GALLBLADDER OPERATION [None]
  - SUPERINFECTION [None]
